FAERS Safety Report 7032800-6 (Version None)
Quarter: 2010Q4

REPORT INFORMATION
  Report Type: 
  Country: None (occurrence: None)
  Receive Date: 20101007
  Receipt Date: 20101001
  Transmission Date: 20110411
  Serious: Yes (Hospitalization)
  Sender: FDA-Public Use
  Company Number: US-B.I. PHARMACEUTICALS,INC./RIDGEFIELD-2010-BP-10576BP

PATIENT
  Sex: Male

DRUGS (7)
  1. COMBIVENT [Suspect]
     Indication: CHRONIC OBSTRUCTIVE PULMONARY DISEASE
     Dosage: 8 PUF
     Route: 055
  2. PULMICORT [Concomitant]
  3. METHIMAZOLE [Concomitant]
  4. LEVOXYL [Concomitant]
  5. AMLOD/BENAZPRL [Concomitant]
  6. IRON SUPPLEMENT [Concomitant]
     Dosage: 0.16 MG
  7. VITAMIN D SUPPLEMENT [Concomitant]
     Dosage: 1000 U

REACTIONS (5)
  - ANAEMIA [None]
  - DRUG INEFFECTIVE [None]
  - DYSPNOEA [None]
  - GASTRIC ULCER HAEMORRHAGE [None]
  - HYPERTENSION [None]
